FAERS Safety Report 5900657-X (Version None)
Quarter: 2008Q3

REPORT INFORMATION
  Report Type: 
  Country: None (occurrence: None)
  Receive Date: 20080926
  Receipt Date: 20080917
  Transmission Date: 20090109
  Serious: Yes (Other)
  Sender: FDA-Public Use
  Company Number: SE-PFIZER INC-2008078985

PATIENT

DRUGS (5)
  1. SERTRALINE [Suspect]
     Route: 064
  2. MIRTAZAPINE [Suspect]
     Route: 064
  3. IRON [Suspect]
     Route: 064
  4. VITAMINS [Suspect]
     Route: 064
  5. FOLIC ACID [Suspect]
     Route: 064

REACTIONS (2)
  - DRUG EXPOSURE DURING PREGNANCY [None]
  - PERSISTENT FOETAL CIRCULATION [None]
